FAERS Safety Report 5616322-2 (Version None)
Quarter: 2008Q1

REPORT INFORMATION
  Report Type: 
  Country: None (occurrence: None)
  Receive Date: 20080204
  Receipt Date: 20080121
  Transmission Date: 20080703
  Serious: Yes (Hospitalization)
  Sender: FDA-Public Use
  Company Number: 023295

PATIENT
  Age: 57 Year
  Sex: Male

DRUGS (5)
  1. LITHIUM CARBONATE [Suspect]
     Indication: DEPRESSION
     Dosage: 600 MG DAY
  2. QUETIAPINE FUMARATE [Concomitant]
  3. PAROXETINE HCL [Concomitant]
  4. VALPROIC ACID [Concomitant]
  5. PROPRANOLOL [Concomitant]

REACTIONS (14)
  - AFFECT LABILITY [None]
  - ANTIPSYCHOTIC DRUG LEVEL INCREASED [None]
  - BLOOD CREATININE INCREASED [None]
  - BLOOD UREA INCREASED [None]
  - CEREBELLAR SYNDROME [None]
  - DECREASED APPETITE [None]
  - DRUG SCREEN POSITIVE [None]
  - DYSARTHRIA [None]
  - DYSPROSODY [None]
  - FAECAL INCONTINENCE [None]
  - FALL [None]
  - UNRESPONSIVE TO STIMULI [None]
  - URINARY INCONTINENCE [None]
  - VOMITING [None]
